FAERS Safety Report 6128703-1 (Version None)
Quarter: 2009Q1

REPORT INFORMATION
  Report Type: 
  Country: None (occurrence: None)
  Receive Date: 20090323
  Receipt Date: 20090317
  Transmission Date: 20090719
  Serious: Yes (Death, Other)
  Sender: FDA-Public Use
  Company Number: US-CELGENEUS-163-21880-08100010

PATIENT
  Sex: Male

DRUGS (12)
  1. REVLIMID [Suspect]
     Route: 048
     Dates: start: 20080421, end: 20080905
  2. FOLIC ACID [Suspect]
     Indication: DRUG USE FOR UNKNOWN INDICATION
  3. DECADRON [Suspect]
     Indication: MULTIPLE MYELOMA
  4. COUMADIN [Concomitant]
     Indication: HYPERVISCOSITY SYNDROME
  5. NORVASC [Concomitant]
     Indication: DRUG USE FOR UNKNOWN INDICATION
  6. ROCALTROL [Concomitant]
     Indication: DRUG USE FOR UNKNOWN INDICATION
  7. PHOSLO [Concomitant]
     Indication: DRUG USE FOR UNKNOWN INDICATION
  8. COLACE [Concomitant]
     Indication: DRUG USE FOR UNKNOWN INDICATION
  9. PROCRIT [Concomitant]
     Indication: DRUG USE FOR UNKNOWN INDICATION
     Dosage: 3400 UNITS
  10. MULTIPLE VITAMIN [Concomitant]
     Indication: DRUG USE FOR UNKNOWN INDICATION
     Dosage: 1 TABLET DAILY
  11. PROTONIX [Concomitant]
     Indication: DRUG USE FOR UNKNOWN INDICATION
  12. NEPHRO-VITE [Concomitant]
     Indication: DRUG USE FOR UNKNOWN INDICATION
     Dosage: 1 TABLET DAILY

REACTIONS (8)
  - BLADDER PERFORATION [None]
  - HAEMATURIA [None]
  - HAEMOGLOBIN DECREASED [None]
  - RENAL FAILURE ACUTE [None]
  - RESPIRATORY FAILURE [None]
  - SUBDURAL HAEMATOMA [None]
  - THROMBOCYTOPENIA [None]
  - UROGENITAL HAEMORRHAGE [None]
